FAERS Safety Report 23576981 (Version 3)
Quarter: 2024Q1

REPORT INFORMATION
  Report Type: Spontaneous
  Country: US (occurrence: US)
  Receive Date: 20240228
  Receipt Date: 20240319
  Transmission Date: 20240409
  Serious: Yes (Death, Life-Threatening, Hospitalization, Other)
  Sender: FDA-Public Use
  Company Number: US-Calliditas-2024CAL00291

PATIENT
  Age: 48 Year
  Sex: Male

DRUGS (16)
  1. TARPEYO [Suspect]
     Active Substance: BUDESONIDE
     Indication: IgA nephropathy
     Route: 048
     Dates: start: 20221026, end: 20240218
  2. FISH OIL [Concomitant]
     Active Substance: FISH OIL
  3. TENORMIN [Concomitant]
     Active Substance: ATENOLOL
     Route: 048
     Dates: start: 20200911
  4. ERGOCALCIFEROL [Concomitant]
     Active Substance: ERGOCALCIFEROL
     Route: 048
     Dates: start: 20200911
  5. COZAAR [Concomitant]
     Active Substance: LOSARTAN POTASSIUM
     Route: 048
     Dates: start: 20200911
  6. PRILOSEC [Concomitant]
     Active Substance: OMEPRAZOLE MAGNESIUM
     Route: 048
     Dates: start: 20200911
  7. SODIUM BICARBONATE [Concomitant]
     Active Substance: SODIUM BICARBONATE
     Route: 048
     Dates: start: 20201002
  8. FARXIGA [Concomitant]
     Active Substance: DAPAGLIFLOZIN PROPANEDIOL
     Route: 048
     Dates: start: 20231103
  9. ASPIRIN [Concomitant]
     Active Substance: ASPIRIN
     Route: 048
     Dates: start: 20231122
  10. ZYLOPRIM [Concomitant]
     Active Substance: ALLOPURINOL
     Route: 048
     Dates: start: 20231107
  11. CELLCEPT [Concomitant]
     Active Substance: MYCOPHENOLATE MOFETIL
     Route: 048
     Dates: start: 20231031
  12. DEMADEX [Concomitant]
     Active Substance: TORSEMIDE
     Route: 048
     Dates: start: 20231024
  13. KLOR-CON M20 [Concomitant]
     Active Substance: POTASSIUM CHLORIDE
     Route: 048
     Dates: start: 20230822
  14. TESSALON [Concomitant]
     Active Substance: BENZONATATE
     Route: 048
     Dates: start: 20231229
  15. NORVASC [Concomitant]
     Active Substance: AMLODIPINE BESYLATE
     Route: 048
     Dates: start: 20231206
  16. PRAVACHOL [Concomitant]
     Active Substance: PRAVASTATIN SODIUM
     Route: 048
     Dates: start: 20200911

REACTIONS (27)
  - Fall [Unknown]
  - Spinal compression fracture [Unknown]
  - COVID-19 pneumonia [Fatal]
  - Influenza [Unknown]
  - Dizziness [Unknown]
  - Pneumonia influenzal [Fatal]
  - Spinal compression fracture [Unknown]
  - Anaemia [Unknown]
  - Mouth ulceration [Unknown]
  - Asthenia [Unknown]
  - Cardiac arrest [Recovered/Resolved]
  - Toxic encephalopathy [Unknown]
  - Embolic stroke [Unknown]
  - Fall [Unknown]
  - Pneumonia bacterial [Unknown]
  - Inappropriate schedule of product administration [Unknown]
  - Pneumonia bacterial [Unknown]
  - Atrial fibrillation [Unknown]
  - Bronchopulmonary aspergillosis [Unknown]
  - Haemorrhagic transformation stroke [Unknown]
  - Necrosis ischaemic [Unknown]
  - Right ventricular dysfunction [Unknown]
  - Acute respiratory distress syndrome [Unknown]
  - Cardiogenic shock [Unknown]
  - Acute respiratory failure [Unknown]
  - Distributive shock [Unknown]
  - Shock haemorrhagic [Unknown]

NARRATIVE: CASE EVENT DATE: 20231201
